FAERS Safety Report 9713969 (Version 2)
Quarter: 2015Q3

REPORT INFORMATION
  Report Type: Spontaneous
  Country: US (occurrence: US)
  Receive Date: 20131126
  Receipt Date: 20150803
  Transmission Date: 20151125
  Serious: No
  Sender: FDA-Public Use
  Company Number: US-GILEAD-2008-0018326

PATIENT
  Age: 28 Year
  Sex: Female
  Weight: 72.57 kg

DRUGS (8)
  1. AFRIN [Concomitant]
     Active Substance: OXYMETAZOLINE
  2. LOVENOX [Concomitant]
     Active Substance: ENOXAPARIN SODIUM
  3. LETAIRIS [Suspect]
     Active Substance: AMBRISENTAN
     Indication: PULMONARY ARTERIAL HYPERTENSION
     Route: 048
     Dates: start: 20080924
  4. LEVOTHROID [Concomitant]
     Active Substance: LEVOTHYROXINE SODIUM
  5. DILAUDID [Concomitant]
     Active Substance: HYDROMORPHONE HYDROCHLORIDE
  6. KLOR-CON [Concomitant]
     Active Substance: POTASSIUM CHLORIDE
  7. CELEBREX [Concomitant]
     Active Substance: CELECOXIB
  8. LASIX [Concomitant]
     Active Substance: FUROSEMIDE

REACTIONS (2)
  - Nasal congestion [None]
  - Hiccups [None]
